FAERS Safety Report 5748634-6 (Version None)
Quarter: 2008Q2

REPORT INFORMATION
  Report Type: 
  Country: None (occurrence: None)
  Receive Date: 20080521
  Receipt Date: 20080506
  Transmission Date: 20081010
  Serious: Yes (Other)
  Sender: FDA-Public Use
  Company Number: 2008BI011810

PATIENT
  Age: 58 Year
  Sex: Male

DRUGS (9)
  1. TYSABRI [Suspect]
     Indication: MULTIPLE SCLEROSIS
     Dosage: 300 MG;QM;IV
     Route: 042
     Dates: start: 20070313
  2. ATENOLOL [Concomitant]
  3. PLAVIX [Concomitant]
  4. PROVIGIL [Concomitant]
  5. ZETIA [Concomitant]
  6. METFORMIN HCL [Concomitant]
  7. LIPITOR [Concomitant]
  8. ASPIRIN [Concomitant]
  9. LEXAPRO [Concomitant]

REACTIONS (1)
  - LUNG ADENOCARCINOMA STAGE II [None]
